FAERS Safety Report 15112287 (Version 1)
Quarter: 2018Q3

REPORT INFORMATION
  Report Type: Spontaneous
  Country: US (occurrence: US)
  Receive Date: 20180705
  Receipt Date: 20180705
  Transmission Date: 20181010
  Serious: No
  Sender: FDA-Public Use
  Company Number: US-AMAG PHARMACEUTICALS, INC.-AMAG201801920

PATIENT

DRUGS (1)
  1. FERAHEME [Suspect]
     Active Substance: FERUMOXYTOL NON-STOICHIOMETRIC MAGNETITE
     Indication: PRODUCT USED FOR UNKNOWN INDICATION
     Dosage: 510 MG, UNK
     Route: 041

REACTIONS (9)
  - Dyspnoea [Unknown]
  - Back pain [Unknown]
  - Hyperhidrosis [Recovered/Resolved]
  - Flushing [Unknown]
  - Blood pressure increased [Unknown]
  - Dizziness [Unknown]
  - Chills [Unknown]
  - Pruritus [Unknown]
  - Blood pressure decreased [Unknown]

NARRATIVE: CASE EVENT DATE: 20180424
